FAERS Safety Report 7014188-X (Version None)
Quarter: 2010Q3

REPORT INFORMATION
  Report Type: 
  Country: None (occurrence: None)
  Receive Date: 20100927
  Receipt Date: 20100811
  Transmission Date: 20110219
  Serious: Yes (Hospitalization, Other)
  Sender: FDA-Public Use
  Company Number: US-BAYER-200934825NA

PATIENT
  Age: 26 Year
  Sex: Female
  Weight: 83 kg

DRUGS (2)
  1. YAZ [Suspect]
     Indication: PRODUCT USED FOR UNKNOWN INDICATION
     Route: 048
     Dates: start: 20090601, end: 20090801
  2. NAPROXEN [Concomitant]
     Indication: JOINT SPRAIN
     Dates: start: 20090721

REACTIONS (6)
  - CHEST DISCOMFORT [None]
  - DEEP VEIN THROMBOSIS [None]
  - PAIN [None]
  - PAIN IN EXTREMITY [None]
  - PULMONARY EMBOLISM [None]
  - WHEEZING [None]
